FAERS Safety Report 9730413 (Version 3)
Quarter: 2013Q4

REPORT INFORMATION
  Report Type: Report from Study
  Country: JP (occurrence: JP)
  Receive Date: 20131202
  Receipt Date: 20131211
  Transmission Date: 20140711
  Serious: Yes (Other)
  Sender: FDA-Public Use
  Company Number: JP-OTSUKA-JP-2013-13589

PATIENT
  Age: 80 Year
  Sex: Female
  Weight: 39.4 kg

DRUGS (5)
  1. SAMSCA [Suspect]
     Indication: FLUID RETENTION
     Dosage: 15 MG MILLIGRAM(S), QAM
     Route: 048
     Dates: start: 20121204, end: 20121217
  2. ALDACTONE A [Suspect]
     Indication: CARDIAC FAILURE
     Dosage: 25 MG MILLIGRAM(S), DAILY DOSE
     Route: 048
  3. LASIX [Suspect]
     Indication: CARDIAC FAILURE
     Dosage: 40 MG MILLIGRAM(S), DAILY DOSE
     Route: 042
     Dates: start: 20121105
  4. ARTIST [Concomitant]
     Indication: PROPHYLAXIS
     Dosage: 10 MG MILLIGRAM(S), DAILY DOSE
     Route: 048
     Dates: start: 20121105
  5. FLUITRAN [Concomitant]
     Indication: CARDIAC FAILURE
     Dosage: 2 MG MILLIGRAM(S), DAILY DOSE
     Route: 048
     Dates: start: 20121212, end: 20130110

REACTIONS (3)
  - Blood urea increased [Unknown]
  - Thirst [Recovered/Resolved]
  - Dehydration [Recovered/Resolved]
